FAERS Safety Report 19380500 (Version 1)
Quarter: 2021Q2

REPORT INFORMATION
  Report Type: Spontaneous
  Country: US (occurrence: US)
  Receive Date: 20210604
  Receipt Date: 20210604
  Transmission Date: 20210717
  Serious: Yes (Hospitalization)
  Sender: FDA-Public Use
  Company Number: None

PATIENT
  Age: 77 Year
  Sex: Female

DRUGS (1)
  1. AMBRISENTAN 5MG TAB [Suspect]
     Active Substance: AMBRISENTAN
     Indication: PULMONARY ARTERIAL HYPERTENSION
     Route: 048
     Dates: start: 20210512

REACTIONS (5)
  - Therapy interrupted [None]
  - Peripheral swelling [None]
  - Pericardial effusion [None]
  - Muscle spasms [None]
  - Fluid retention [None]

NARRATIVE: CASE EVENT DATE: 20210526
